FAERS Safety Report 7398167-9 (Version None)
Quarter: 2011Q2

REPORT INFORMATION
  Report Type: 
  Country: None (occurrence: None)
  Receive Date: 20110406
  Receipt Date: 20110324
  Transmission Date: 20111010
  Serious: Yes (Hospitalization, Other)
  Sender: FDA-Public Use
  Company Number: PHEH2007US11535

PATIENT
  Sex: Female
  Weight: 36.281 kg

DRUGS (46)
  1. PREDNISONE [Concomitant]
     Dosage: UNK
  2. PROPOXYPHENE NAPSYLATE W/ ACETAMINOPHEN [Concomitant]
     Indication: PAIN
     Dosage: UNK / PRN
  3. MEPERIDINE [Concomitant]
  4. NIFEDIPINE [Concomitant]
  5. MIACALCIN [Concomitant]
     Dosage: UNK
  6. ZOLOFT [Concomitant]
     Indication: DEPRESSION
     Dosage: 50 MG / QD
  7. QUESTRAN [Concomitant]
     Dosage: 1/2 PACKET/ BID
  8. VIOXX [Concomitant]
     Dosage: UNK
  9. ADVAIR DISKUS 100/50 [Concomitant]
     Indication: EMPHYSEMA
     Dosage: 100 MG / QD
  10. TIGECYCLINE [Concomitant]
  11. ACIPHEX [Concomitant]
  12. ULTRACET [Concomitant]
     Indication: PAIN MANAGEMENT
     Dosage: UNK
  13. HORMONES NOS [Concomitant]
     Dosage: UNK, UNK
  14. AREDIA [Suspect]
     Dosage: UNK
     Dates: end: 20050801
  15. HYDROXYUREA [Concomitant]
  16. SERTRALINE HYDROCHLORIDE [Concomitant]
  17. PROTONIX [Concomitant]
     Dosage: 40 MG / QD
  18. SANDOSTATIN LAR [Concomitant]
     Dosage: 30 MG / Q4
  19. HYDROXYZINE [Concomitant]
  20. FAMOTIDINE [Concomitant]
  21. ARESTIN [Concomitant]
     Dosage: UNK
     Dates: end: 20040101
  22. NORVASC [Concomitant]
     Dosage: 5 MG / QD
  23. LOTREL [Concomitant]
     Indication: HYPERTENSION
     Dosage: UNK
  24. HYDREA [Concomitant]
     Dosage: 500 MG / TWICE A DAY
  25. KETOROLAC TROMETHAMINE [Concomitant]
  26. ONDANSETRON [Concomitant]
  27. LOPERAMIDE [Concomitant]
  28. APRESOLINE [Concomitant]
  29. LISINOPRIL [Concomitant]
  30. MULTI-VITAMINS [Concomitant]
  31. SEPTOCAINE [Concomitant]
     Dosage: UNK
     Dates: start: 20040517
  32. EPOGEN [Concomitant]
     Dosage: UNK
  33. TEVETEN [Concomitant]
     Dosage: 600 MG / QD
  34. OXYGEN THERAPY [Concomitant]
     Dosage: 4 LITERS
  35. FORTICAL /USA/ [Concomitant]
  36. DIPHENOXYLATE HCL AND ATROPINE SULFATE [Concomitant]
  37. ESOMEPRAZOLE [Concomitant]
  38. FOLIC ACID [Concomitant]
  39. METOPROLOL [Concomitant]
     Dosage: 100 MG / QD
  40. ANUSOL                                  /NET/ [Concomitant]
     Dosage: UNK
  41. LOPRESSOR [Concomitant]
     Dosage: UNK
  42. SANDOSTATIN LAR [Concomitant]
     Dosage: 20 MG/ Q4
  43. ACETAMINOPHEN [Concomitant]
  44. GLYCOPYRROLATE [Concomitant]
  45. LEVALBUTEROL HYDROCHLORIDE [Concomitant]
  46. QUESTRAN [Concomitant]

REACTIONS (100)
  - INJURY [None]
  - FACIAL BONES FRACTURE [None]
  - LIVER FUNCTION TEST ABNORMAL [None]
  - CHRONIC OBSTRUCTIVE PULMONARY DISEASE [None]
  - MYOPIA [None]
  - KERATITIS [None]
  - BLINDNESS TRANSIENT [None]
  - HYPOXIA [None]
  - DYSLIPIDAEMIA [None]
  - PERIODONTAL DISEASE [None]
  - GASTROINTESTINAL HAEMORRHAGE [None]
  - OSTEOARTHRITIS [None]
  - MALNUTRITION [None]
  - OESOPHAGEAL FOOD IMPACTION [None]
  - VITREOUS HAEMORRHAGE [None]
  - KERATOCONJUNCTIVITIS SICCA [None]
  - CORONARY ARTERY DISEASE [None]
  - INTESTINAL MUCOSAL ATROPHY [None]
  - WEIGHT DECREASED [None]
  - ANHEDONIA [None]
  - ANAEMIA [None]
  - CHOLELITHIASIS [None]
  - RECTAL PROLAPSE [None]
  - PANCREATITIS ACUTE [None]
  - CHOLECYSTITIS [None]
  - PLEURAL EFFUSION [None]
  - PULMONARY MASS [None]
  - BASAL CELL CARCINOMA [None]
  - AZOTAEMIA [None]
  - CONTUSION [None]
  - ELECTROCARDIOGRAM ABNORMAL [None]
  - GASTRINOMA [None]
  - MYELOPROLIFERATIVE DISORDER [None]
  - OSTEOMYELITIS [None]
  - ROTATOR CUFF SYNDROME [None]
  - OESOPHAGEAL STENOSIS [None]
  - OSTEOPENIA [None]
  - CARDIOMEGALY [None]
  - BRONCHITIS [None]
  - EYE INJURY [None]
  - DIPLOPIA [None]
  - GLAUCOMA [None]
  - FOOT DEFORMITY [None]
  - OSTEOPOROSIS [None]
  - ABSCESS ORAL [None]
  - SYNCOPE [None]
  - ADENOMA BENIGN [None]
  - DEHYDRATION [None]
  - FALL [None]
  - RIB FRACTURE [None]
  - VENTRICULAR TACHYCARDIA [None]
  - HYPERTENSIVE HEART DISEASE [None]
  - VITAMIN D DEFICIENCY [None]
  - INTERVERTEBRAL DISC DEGENERATION [None]
  - DIARRHOEA [None]
  - BONE DISORDER [None]
  - ATELECTASIS [None]
  - DYSPHAGIA [None]
  - FEELING ABNORMAL [None]
  - CHOROIDAL DETACHMENT [None]
  - TENDONITIS [None]
  - TENDERNESS [None]
  - ULCER HAEMORRHAGE [None]
  - FATIGUE [None]
  - NEPHROLITHIASIS [None]
  - HIATUS HERNIA [None]
  - MENTAL DISORDER [None]
  - DEPRESSION [None]
  - HYPERTENSION [None]
  - RENAL FAILURE [None]
  - BILIARY DILATATION [None]
  - FACIAL PAIN [None]
  - ARTERIOSCLEROSIS [None]
  - VISION BLURRED [None]
  - VITREOUS FLOATERS [None]
  - HEAD INJURY [None]
  - OEDEMA PERIPHERAL [None]
  - EMPHYSEMA [None]
  - SPINAL COMPRESSION FRACTURE [None]
  - OSTEONECROSIS OF JAW [None]
  - PAIN [None]
  - ANXIETY [None]
  - THROMBOCYTOSIS [None]
  - ERB'S PALSY [None]
  - PNEUMONIA [None]
  - COMPRESSION FRACTURE [None]
  - EXTRASYSTOLES [None]
  - CHEST PAIN [None]
  - ORAL MUCOSAL HYPERTROPHY [None]
  - OESOPHAGEAL OBSTRUCTION [None]
  - DIVERTICULUM OESOPHAGEAL [None]
  - ECTROPION [None]
  - VITREOUS DETACHMENT [None]
  - HYPOTONY OF EYE [None]
  - PERIARTHRITIS [None]
  - ARTHRALGIA [None]
  - MUSCULAR WEAKNESS [None]
  - GAIT DISTURBANCE [None]
  - CARDIAC FAILURE CONGESTIVE [None]
  - URINARY TRACT INFECTION STAPHYLOCOCCAL [None]
